FAERS Safety Report 6255902-0 (Version None)
Quarter: 2009Q3

REPORT INFORMATION
  Report Type: 
  Country: None (occurrence: None)
  Receive Date: 20090703
  Receipt Date: 20090622
  Transmission Date: 20100115
  Serious: Yes (Hospitalization)
  Sender: FDA-Public Use
  Company Number: US-MYLANLABS-2009S1010119

PATIENT
  Age: 56 Year
  Sex: Female
  Weight: 56.7 kg

DRUGS (19)
  1. FENTANYL TRANSDERMAL SYSTEM [Suspect]
     Indication: FIBROMYALGIA
     Dosage: Q72H
     Route: 062
     Dates: start: 20080729, end: 20080901
  2. FENTANYL TRANSDERMAL SYSTEM [Suspect]
     Indication: PAIN
     Dosage: Q72H
     Route: 062
     Dates: start: 20080729, end: 20080901
  3. FENTANYL TRANSDERMAL SYSTEM [Suspect]
     Indication: ARTHRITIS
     Dosage: Q72H
     Route: 062
     Dates: start: 20080729, end: 20080901
  4. FENTANYL TRANSDERMAL SYSTEM [Suspect]
     Dosage: Q72H
     Route: 062
     Dates: start: 20080901, end: 20081212
  5. FENTANYL TRANSDERMAL SYSTEM [Suspect]
     Dosage: Q72H
     Route: 062
     Dates: start: 20080901, end: 20081212
  6. FENTANYL TRANSDERMAL SYSTEM [Suspect]
     Dosage: Q72H
     Route: 062
     Dates: start: 20080901, end: 20081212
  7. FENTANYL TRANSDERMAL SYSTEM [Suspect]
     Dosage: Q72H
     Route: 062
     Dates: start: 20081213, end: 20090301
  8. FENTANYL TRANSDERMAL SYSTEM [Suspect]
     Dosage: Q72H
     Route: 062
     Dates: start: 20081213, end: 20090301
  9. FENTANYL TRANSDERMAL SYSTEM [Suspect]
     Dosage: Q72H
     Route: 062
     Dates: start: 20081213, end: 20090301
  10. XANAX [Concomitant]
     Indication: ANXIETY
     Route: 048
     Dates: start: 20040101
  11. BACLOFEN [Concomitant]
     Indication: MUSCLE SPASMS
     Route: 048
     Dates: start: 20040101
  12. NAPROXEN [Concomitant]
     Indication: PAIN
     Route: 048
     Dates: start: 20040101
  13. BUTALBITAL [Concomitant]
     Indication: HEADACHE
     Route: 048
     Dates: start: 20040101
  14. TRAMADOL HCL [Concomitant]
     Route: 048
  15. VITAMIN B-12 [Concomitant]
     Route: 030
  16. PROAIR HFA [Concomitant]
  17. LIDODERM [Concomitant]
     Route: 062
  18. CLIMARA [Concomitant]
     Route: 062
  19. LORTAB [Concomitant]
     Indication: BREAKTHROUGH PAIN

REACTIONS (11)
  - AMNESIA [None]
  - CONFUSIONAL STATE [None]
  - DYSPNOEA [None]
  - HYPERSOMNIA [None]
  - MENTAL STATUS CHANGES [None]
  - OVERDOSE [None]
  - PNEUMONIA ASPIRATION [None]
  - SYNCOPE [None]
  - TOOTH DISORDER [None]
  - TREMOR [None]
  - WEIGHT DECREASED [None]
